FAERS Safety Report 5772914-1 (Version None)
Quarter: 2008Q2

REPORT INFORMATION
  Report Type: 
  Country: None (occurrence: None)
  Receive Date: 20080613
  Receipt Date: 20080604
  Transmission Date: 20081010
  Serious: Yes (Hospitalization, Disabling, Other)
  Sender: FDA-Public Use
  Company Number: PT-MERCK-0806PRT00004

PATIENT
  Age: 47 Year
  Sex: Female
  Weight: 51 kg

DRUGS (3)
  1. VYTORIN [Suspect]
     Indication: HYPERCHOLESTEROLAEMIA
     Route: 048
     Dates: start: 20080405, end: 20080409
  2. DEANOL ACEGLUMATE [Concomitant]
     Indication: MEMORY IMPAIRMENT
     Route: 048
     Dates: start: 20080405, end: 20080406
  3. HEPTAMINOL HYDROCHLORIDE [Concomitant]
     Indication: MEMORY IMPAIRMENT
     Route: 048
     Dates: start: 20080405, end: 20080406

REACTIONS (5)
  - DIARRHOEA [None]
  - DIZZINESS [None]
  - DRY MOUTH [None]
  - INSOMNIA [None]
  - MYALGIA [None]
